FAERS Safety Report 8102275-4 (Version None)
Quarter: 2012Q1

REPORT INFORMATION
  Report Type: 
  Country: None (occurrence: None)
  Receive Date: 20120201
  Receipt Date: 20120130
  Transmission Date: 20120608
  Serious: Yes (Other)
  Sender: FDA-Public Use
  Company Number: US-PFIZER INC-2012025833

PATIENT
  Sex: Male
  Weight: 75.283 kg

DRUGS (9)
  1. CLONAZEPAM [Concomitant]
     Dosage: 30 MG, UNK
  2. DICLOFENAC [Concomitant]
     Dosage: 75 MG, UNK
  3. DICYCLOMINE [Concomitant]
     Dosage: 20 MG, UNK
  4. TRAMADOL [Concomitant]
     Dosage: 50 MG, UNK
  5. CHANTIX [Suspect]
     Dosage: 1 MG, 2X/DAY
     Dates: start: 20120101
  6. BUSPIRONE [Concomitant]
     Dosage: 10 MG, UNK
  7. CHANTIX [Suspect]
     Indication: SMOKING CESSATION THERAPY
     Dosage: 0.5 MG, DAILY
     Dates: start: 20120121, end: 20120101
  8. OMEPRAZOLE [Concomitant]
     Dosage: 3 MG, UNK
  9. SIMVASTATIN [Concomitant]
     Dosage: 20 MG, UNK

REACTIONS (3)
  - GASTROINTESTINAL HAEMORRHAGE [None]
  - PAIN [None]
  - ABDOMINAL PAIN UPPER [None]
